FAERS Safety Report 20261676 (Version 2)
Quarter: 2022Q1

REPORT INFORMATION
  Report Type: Spontaneous
  Country: JP (occurrence: JP)
  Receive Date: 20211231
  Receipt Date: 20220201
  Transmission Date: 20220423
  Serious: Yes (Other)
  Sender: FDA-Public Use
  Company Number: JP-TAKEDA-2021TJP140767

PATIENT
  Age: 5 Decade
  Sex: Male

DRUGS (6)
  1. ADVATE [Suspect]
     Active Substance: ANTIHEMOPHILIC FACTOR, HUMAN RECOMBINANT
     Indication: Haemostasis
     Dosage: 3000 INTERNATIONAL UNIT, ABOUT 2/WEEK FOR ON DEMEND
     Route: 042
  2. ADVATE [Suspect]
     Active Substance: ANTIHEMOPHILIC FACTOR, HUMAN RECOMBINANT
     Indication: Haemostasis
     Dosage: 3000 INTERNATIONAL UNIT, ABOUT 2/WEEK FOR ON DEMEND
     Route: 042
  3. ADVATE [Suspect]
     Active Substance: ANTIHEMOPHILIC FACTOR, HUMAN RECOMBINANT
     Indication: Haemostasis
     Dosage: 3000 INTERNATIONAL UNIT, ABOUT 2/WEEK FOR ON DEMEND
     Route: 042
  4. ADVATE [Suspect]
     Active Substance: ANTIHEMOPHILIC FACTOR, HUMAN RECOMBINANT
     Dosage: 3000 INTERNATIONAL UNIT, ABOUT 2/WEEK FOR ON DEMEND
     Route: 042
     Dates: end: 20220127
  5. ADVATE [Suspect]
     Active Substance: ANTIHEMOPHILIC FACTOR, HUMAN RECOMBINANT
     Dosage: 3000 INTERNATIONAL UNIT, ABOUT 2/WEEK FOR ON DEMEND
     Route: 042
     Dates: end: 20220127
  6. ADVATE [Suspect]
     Active Substance: ANTIHEMOPHILIC FACTOR, HUMAN RECOMBINANT
     Dosage: 3000 INTERNATIONAL UNIT, ABOUT 2/WEEK FOR ON DEMEND
     Route: 042
     Dates: end: 20220127

REACTIONS (2)
  - Haemorrhage [Recovered/Resolved]
  - Injury [Unknown]

NARRATIVE: CASE EVENT DATE: 20211226
